FAERS Safety Report 7227119-4 (Version None)
Quarter: 2011Q1

REPORT INFORMATION
  Report Type: 
  Country: None (occurrence: None)
  Receive Date: 20110114
  Receipt Date: 20110107
  Transmission Date: 20110831
  Serious: Yes (Death, Hospitalization)
  Sender: FDA-Public Use
  Company Number: PL-PFIZER INC-PL-WYE-H15798210

PATIENT
  Age: 65 Year
  Sex: Male
  Weight: 80 kg

DRUGS (4)
  1. PILOCARPINE [Concomitant]
     Indication: GLAUCOMA
     Dosage: UNK
     Route: 065
     Dates: start: 20000101
  2. TEMSIROLIMUS [Suspect]
     Indication: RENAL CELL CARCINOMA
     Dosage: 25 MG, 1X/WK
     Route: 042
     Dates: start: 20100406, end: 20100614
  3. *BEVACIZUMAB [Suspect]
     Indication: RENAL CELL CARCINOMA
     Dosage: 10 MG/KG, 1 TIME PER 2 WKS
     Route: 042
     Dates: start: 20100406, end: 20100614
  4. LOPERAMIDE [Concomitant]
     Indication: DIARRHOEA
     Dosage: UNK
     Route: 065
     Dates: start: 20100618

REACTIONS (5)
  - PERITONITIS [None]
  - SEPTIC SHOCK [None]
  - GENERAL PHYSICAL HEALTH DETERIORATION [None]
  - LARGE INTESTINE PERFORATION [None]
  - MULTI-ORGAN FAILURE [None]
